FAERS Safety Report 11966761 (Version 2)
Quarter: 2016Q2

REPORT INFORMATION
  Report Type: Spontaneous
  Country: US (occurrence: US)
  Receive Date: 20160127
  Receipt Date: 20160531
  Transmission Date: 20160815
  Serious: Yes (Death, Other)
  Sender: FDA-Public Use
  Company Number: US-ABBVIE-16P-163-1547186-00

PATIENT
  Sex: Male

DRUGS (2)
  1. AXIRON [Suspect]
     Active Substance: TESTOSTERONE
     Indication: ANDROGEN REPLACEMENT THERAPY
     Route: 065
     Dates: start: 2010, end: 20151013
  2. ANDROGEL [Suspect]
     Active Substance: TESTOSTERONE
     Indication: ANDROGEN REPLACEMENT THERAPY
     Route: 061
     Dates: start: 2010, end: 20151013

REACTIONS (9)
  - Brain injury [Fatal]
  - Septic shock [Unknown]
  - Cerebrovascular accident [Fatal]
  - Transient ischaemic attack [Unknown]
  - Atrial fibrillation [Unknown]
  - Renal failure [Unknown]
  - Cardio-respiratory arrest [Fatal]
  - Cardiac failure congestive [Unknown]
  - Acute left ventricular failure [Fatal]

NARRATIVE: CASE EVENT DATE: 20150919
